FAERS Safety Report 5589275-3 (Version None)
Quarter: 2008Q1

REPORT INFORMATION
  Report Type: 
  Country: None (occurrence: None)
  Receive Date: 20080114
  Receipt Date: 20080104
  Transmission Date: 20080703
  Serious: Yes (Other)
  Sender: FDA-Public Use
  Company Number: US-BAYER-200717297NA

PATIENT

DRUGS (2)
  1. MAGNEVIST [Suspect]
     Indication: ARTHROGRAM
     Route: 065
  2. ULTRAVIST (PHARMACY BULK) [Suspect]
     Indication: ARTHROGRAM
     Route: 065

REACTIONS (1)
  - CONVULSION [None]
